FAERS Safety Report 7151497-8 (Version None)
Quarter: 2010Q4

REPORT INFORMATION
  Report Type: 
  Country: None (occurrence: None)
  Receive Date: 20101210
  Receipt Date: 20101130
  Transmission Date: 20110411
  Serious: Yes (Hospitalization)
  Sender: FDA-Public Use
  Company Number: US-JNJFOC-20101200851

PATIENT
  Age: 32 Year
  Sex: Male
  Weight: 128 kg

DRUGS (7)
  1. EXTRA STRENGTH TYLENOL PM [Suspect]
     Indication: PRODUCT USED FOR UNKNOWN INDICATION
     Route: 048
  2. ALCOHOL [Suspect]
     Indication: INTENTIONAL SELF-INJURY
  3. DOXYLAMINE [Concomitant]
     Route: 065
  4. DEXTROMETHORPHAN [Concomitant]
     Route: 065
  5. UNSPECIFIED ANTICONVULSANT [Concomitant]
     Route: 065
  6. MOOD STABILIZER, NOS [Concomitant]
     Route: 065
  7. CLONAZEPAM [Concomitant]
     Route: 065

REACTIONS (8)
  - ABDOMINAL PAIN [None]
  - ALANINE AMINOTRANSFERASE INCREASED [None]
  - ASPARTATE AMINOTRANSFERASE INCREASED [None]
  - HEPATIC FUNCTION ABNORMAL [None]
  - INTENTIONAL OVERDOSE [None]
  - NAUSEA [None]
  - SUICIDAL IDEATION [None]
  - VOMITING [None]
